FAERS Safety Report 9175090 (Version 2)
Quarter: 2013Q1

REPORT INFORMATION
  Report Type: Report from Study
  Country: CA (occurrence: CA)
  Receive Date: 20130320
  Receipt Date: 20130329
  Transmission Date: 20140127
  Serious: Yes (Other)
  Sender: FDA-Public Use
  Company Number: CA-JNJFOC-20130305999

PATIENT
  Sex: Male
  Weight: 64 kg

DRUGS (9)
  1. REMICADE [Suspect]
     Indication: CROHN^S DISEASE
     Route: 042
     Dates: start: 20120421
  2. ASACOL [Concomitant]
     Route: 065
  3. CORTIFOAM [Concomitant]
     Route: 065
  4. IMURAN [Concomitant]
     Route: 065
  5. XALATAN [Concomitant]
     Route: 065
  6. ZOPICLONE [Concomitant]
     Route: 065
  7. NEXIUM [Concomitant]
     Route: 065
  8. LOTEMAX [Concomitant]
     Route: 065
  9. MAXZIDE [Concomitant]
     Route: 065

REACTIONS (3)
  - Arthritis [Recovering/Resolving]
  - Nasopharyngitis [Recovering/Resolving]
  - Asthenia [Recovering/Resolving]
